FAERS Safety Report 10683783 (Version 2)
Quarter: 2015Q1

REPORT INFORMATION
  Report Type: Spontaneous
  Country: US (occurrence: US)
  Receive Date: 20141230
  Receipt Date: 20150216
  Transmission Date: 20150720
  Serious: No
  Sender: FDA-Public Use
  Company Number: US-PFIZER INC-2014360646

PATIENT
  Age: 57 Year
  Sex: Male
  Weight: 127 kg

DRUGS (12)
  1. ZOLOFT [Suspect]
     Active Substance: SERTRALINE HYDROCHLORIDE
     Dosage: 100 MG, TAKING 2, UNK
     Dates: end: 20141201
  2. LOPRESSOR [Concomitant]
     Active Substance: METOPROLOL TARTRATE
     Dosage: UNK
  3. METFORMIN [Concomitant]
     Active Substance: METFORMIN HYDROCHLORIDE
     Dosage: UNK
  4. ALLEGRA [Concomitant]
     Active Substance: FEXOFENADINE HYDROCHLORIDE
     Dosage: UNK
  5. LISINOPRIL. [Concomitant]
     Active Substance: LISINOPRIL
     Dosage: UNK
  6. VALIUM [Concomitant]
     Active Substance: DIAZEPAM
     Dosage: UNK
  7. LEVEMIR [Concomitant]
     Active Substance: INSULIN DETEMIR
     Dosage: UNK
  8. OXYCODONE [Concomitant]
     Active Substance: OXYCODONE
     Dosage: UNK
  9. ZOLOFT [Suspect]
     Active Substance: SERTRALINE HYDROCHLORIDE
     Indication: BIPOLAR DISORDER
     Dosage: 200 MG, DAILY
     Dates: end: 201111
  10. HUMALOG [Concomitant]
     Active Substance: INSULIN LISPRO
     Dosage: UNK
  11. RISPERDAL [Concomitant]
     Active Substance: RISPERIDONE
     Dosage: UNK
     Dates: start: 2010
  12. OXYCONTIN [Concomitant]
     Active Substance: OXYCODONE HYDROCHLORIDE
     Dosage: UNK

REACTIONS (1)
  - Erectile dysfunction [Not Recovered/Not Resolved]
